FAERS Safety Report 4895346-7 (Version None)
Quarter: 2006Q1

REPORT INFORMATION
  Report Type: 
  Country: None (occurrence: None)
  Receive Date: 20060130
  Receipt Date: 20050426
  Transmission Date: 20060701
  Serious: Yes (Hospitalization, Other)
  Sender: FDA-Public Use
  Company Number: US-MERCK-0504USA04862

PATIENT
  Age: 67 Year
  Sex: Female
  Weight: 49 kg

DRUGS (14)
  1. VIOXX [Suspect]
     Indication: ARTHRITIS
     Route: 048
     Dates: start: 19990917, end: 20020130
  2. VIOXX [Suspect]
     Route: 048
     Dates: start: 19990917, end: 20020130
  3. ASPIRIN [Concomitant]
     Route: 065
  4. ALBUTEROL [Concomitant]
     Indication: ASTHMA
     Route: 065
  5. EVISTA [Concomitant]
     Route: 065
  6. MIACALCIN [Concomitant]
     Route: 065
  7. PREVACID [Concomitant]
     Route: 065
  8. UBIQUINONES (UNSPECIFIED) [Concomitant]
     Route: 065
  9. DIGESTIVE ENZYMES [Concomitant]
     Route: 048
  10. BENTYL [Concomitant]
     Route: 065
  11. BENTYL [Concomitant]
     Route: 065
  12. PREMARIN [Concomitant]
     Route: 048
  13. AZMACORT [Concomitant]
     Route: 065
  14. FLONASE [Concomitant]
     Route: 065

REACTIONS (10)
  - CANDIDIASIS [None]
  - CEREBROVASCULAR ACCIDENT [None]
  - DELIRIUM [None]
  - DEMENTIA [None]
  - DYSPHAGIA [None]
  - HAEMORRHAGE [None]
  - MENTAL STATUS CHANGES [None]
  - MULTIPLE SCLEROSIS [None]
  - ROAD TRAFFIC ACCIDENT [None]
  - TRANSIENT ISCHAEMIC ATTACK [None]
